FAERS Safety Report 19041461 (Version 1)
Quarter: 2021Q1

REPORT INFORMATION
  Report Type: Spontaneous
  Country: CA (occurrence: CA)
  Receive Date: 20210322
  Receipt Date: 20210322
  Transmission Date: 20210420
  Serious: Yes (Other)
  Sender: FDA-Public Use
  Company Number: CA-JNJFOC-20210331583

PATIENT
  Age: 31 Year
  Sex: Male

DRUGS (2)
  1. DESOXIMETASONE. [Concomitant]
     Active Substance: DESOXIMETASONE
  2. REMICADE [Suspect]
     Active Substance: INFLIXIMAB
     Indication: COLITIS ULCERATIVE
     Route: 042

REACTIONS (4)
  - Gout [Unknown]
  - Drug level decreased [Unknown]
  - Condition aggravated [Unknown]
  - Off label use [Unknown]
